FAERS Safety Report 15326625 (Version 1)
Quarter: 2018Q3

REPORT INFORMATION
  Report Type: Spontaneous
  Country: DK (occurrence: DK)
  Receive Date: 20180828
  Receipt Date: 20180828
  Transmission Date: 20181010
  Serious: Yes (Death)
  Sender: FDA-Public Use
  Company Number: DK-TEVA-2018-DK-947541

PATIENT
  Age: 44 Year
  Sex: Male
  Weight: 142 kg

DRUGS (8)
  1. CLOZAPINE ACTAVIS [Suspect]
     Active Substance: CLOZAPINE
     Indication: SCHIZOPHRENIA
     Dosage: DOSE: 200 MG AND 600 MG. POTENCY: 100 MG.
     Route: 048
     Dates: start: 20080211
  2. ATROVENT [Concomitant]
     Active Substance: IPRATROPIUM BROMIDE
     Indication: SALIVARY HYPERSECRETION
     Dosage: DOSE: FOR TOPICAL USE IN THE ORAL CAVITY. AGAINST TOO MUCH MOUTH WATER. STRENGTH: 20MG
     Route: 055
     Dates: start: 20170620
  3. SIMVASTATIN ORION [Concomitant]
     Active Substance: SIMVASTATIN
     Indication: HYPERCHOLESTEROLAEMIA
     Dosage: 40 MILLIGRAM DAILY; STRENGTH: 40 MG.
     Route: 048
     Dates: start: 20160329
  4. ZOLPIDEM [Concomitant]
     Active Substance: ZOLPIDEM\ZOLPIDEM TARTRATE
     Indication: INSOMNIA
     Dosage: DOSE: UPON WRITTEN INSTRUCTIONS. STRENGTH: 10 MG.
     Route: 048
     Dates: start: 20160326
  5. PANTOPRAZOLE TEVA [Concomitant]
     Active Substance: PANTOPRAZOLE SODIUM
     Indication: DYSPEPSIA
     Dosage: 80 MILLIGRAM DAILY; STRENGTH: 40 MG.
     Route: 048
  6. MOVICOL [Concomitant]
     Active Substance: POLYETHYLENE GLYCOL 3350\POTASSIUM CHLORIDE\SODIUM BICARBONATE\SODIUM CHLORIDE
     Indication: CONSTIPATION
     Dosage: DOSE: 1 SACHET AS NEEDED, NO MORE THAN TWICE DAILY. STRENGTH: UNKNOWN.
     Route: 048
     Dates: start: 20170901
  7. TRUXAL [Concomitant]
     Active Substance: CHLORPROTHIXENE
     Indication: SEDATIVE THERAPY
     Dosage: DOSE: 25 MG AS NEEDED, NO MORE THAN 3 TIMES DAILY. STRENGTH: 25 MG.
     Route: 048
     Dates: start: 20141111
  8. ABILIFY [Concomitant]
     Active Substance: ARIPIPRAZOLE
     Indication: SCHIZOPHRENIA
     Dosage: 5 MILLIGRAM DAILY; STRENGTH: 5 MG.
     Route: 048
     Dates: start: 20171009

REACTIONS (6)
  - Malaise [Fatal]
  - Loss of consciousness [Fatal]
  - Aspiration [Fatal]
  - Endotracheal intubation [Fatal]
  - Sudden death [Fatal]
  - Cardiac arrest [Fatal]

NARRATIVE: CASE EVENT DATE: 20180727
